FAERS Safety Report 7078520-3 (Version None)
Quarter: 2010Q4

REPORT INFORMATION
  Report Type: 
  Country: None (occurrence: None)
  Receive Date: 20101102
  Receipt Date: 20101016
  Transmission Date: 20110411
  Serious: Yes (Hospitalization, Other)
  Sender: FDA-Public Use
  Company Number: US-AMGEN-USASP2010000555

PATIENT

DRUGS (1)
  1. NEUPOGEN [Suspect]
     Indication: NEUTROPENIA
     Dates: start: 19910101

REACTIONS (10)
  - BONE MARROW TRANSPLANT [None]
  - CHEST PAIN [None]
  - COUGH [None]
  - DIZZINESS [None]
  - MALIGNANT MELANOMA [None]
  - MEMORY IMPAIRMENT [None]
  - NEOPLASM [None]
  - PNEUMONIA PRIMARY ATYPICAL [None]
  - SNEEZING [None]
  - WHITE BLOOD CELL COUNT ABNORMAL [None]
